FAERS Safety Report 15339952 (Version 2)
Quarter: 2018Q3

REPORT INFORMATION
  Report Type: Spontaneous
  Country: US (occurrence: US)
  Receive Date: 20180831
  Receipt Date: 20180912
  Transmission Date: 20181010
  Serious: Yes (Hospitalization, Other)
  Sender: FDA-Public Use
  Company Number: US-BAYER-2018-162899

PATIENT
  Age: 71 Year
  Sex: Female

DRUGS (4)
  1. NEXAVAR [Suspect]
     Active Substance: SORAFENIB
     Indication: CHOLANGIOCARCINOMA
     Dosage: UNK
     Route: 048
     Dates: start: 201801
  2. NEXAVAR [Suspect]
     Active Substance: SORAFENIB
     Indication: CHOLANGIOCARCINOMA
     Dosage: DAILY DOSE 600 MG
     Route: 048
  3. TAMIFLU [Concomitant]
     Active Substance: OSELTAMIVIR PHOSPHATE
  4. NEXAVAR [Suspect]
     Active Substance: SORAFENIB
     Indication: CHOLANGIOCARCINOMA
     Dosage: 400 MG, BID
     Route: 048
     Dates: start: 201709

REACTIONS (30)
  - Nephrolithiasis [None]
  - Nephrolithiasis [None]
  - Abdominal pain lower [None]
  - Flank pain [None]
  - Chromaturia [Recovered/Resolved]
  - Palmar-plantar erythrodysaesthesia syndrome [Not Recovered/Not Resolved]
  - Mouth ulceration [Recovering/Resolving]
  - Metastases to liver [None]
  - Abdominal lymphadenopathy [None]
  - Periorbital oedema [Recovering/Resolving]
  - Haemoglobin decreased [None]
  - Oral pain [None]
  - Diarrhoea [None]
  - Fatigue [None]
  - Lymphadenopathy mediastinal [None]
  - Lymphadenopathy [None]
  - Hepatic lesion [None]
  - Urinary tract infection [None]
  - Off label use [None]
  - Ascites [None]
  - Kidney infection [None]
  - Night sweats [None]
  - Cholangiocarcinoma [Not Recovered/Not Resolved]
  - Nephrolithiasis [None]
  - Dehydration [None]
  - Cholangiocarcinoma [None]
  - Thrombocytopenia [None]
  - Retroperitoneal lymphadenopathy [None]
  - Malaise [None]
  - Product use in unapproved indication [None]

NARRATIVE: CASE EVENT DATE: 2017
